FAERS Safety Report 6445220-X (Version None)
Quarter: 2009Q4

REPORT INFORMATION
  Report Type: 
  Country: None (occurrence: None)
  Receive Date: 20091118
  Receipt Date: 20091106
  Transmission Date: 20100525
  Serious: Yes (Other)
  Sender: FDA-Public Use
  Company Number: SE-PFIZER INC-2009294100

PATIENT
  Age: 29 Year
  Sex: Female

DRUGS (1)
  1. LYRICA [Suspect]
     Indication: DRUG DEPENDENCE
     Dosage: 300MG/24H, UNK
     Route: 048

REACTIONS (1)
  - DRUG TOXICITY [None]
